FAERS Safety Report 22167752 (Version 1)
Quarter: 2023Q2

REPORT INFORMATION
  Report Type: Spontaneous
  Country: DE (occurrence: DE)
  Receive Date: 20230403
  Receipt Date: 20230403
  Transmission Date: 20230722
  Serious: Yes (Life-Threatening, Hospitalization)
  Sender: FDA-Public Use
  Company Number: DE-DCGMA-22200123

PATIENT
  Age: 46 Year
  Sex: Male

DRUGS (1)
  1. AMOXICILLIN [Suspect]
     Active Substance: AMOXICILLIN
     Indication: Sinusitis
     Dosage: 2 DOSAGE FORMS DAILY; 2X1, DURATION: 5 DAYS
     Route: 065
     Dates: start: 20221205, end: 20221210

REACTIONS (3)
  - Renal failure [Unknown]
  - Pulmonary embolism [Unknown]
  - Gastroenteritis clostridial [Unknown]

NARRATIVE: CASE EVENT DATE: 20221213
